FAERS Safety Report 23881844 (Version 1)
Quarter: 2024Q2

REPORT INFORMATION
  Report Type: Other
  Country: KR (occurrence: KR)
  Receive Date: 20240521
  Receipt Date: 20240521
  Transmission Date: 20240716
  Serious: No
  Sender: FDA-Public Use
  Company Number: KR-SIGA Technologies, Inc.-2157269

PATIENT
  Age: 39 Year
  Sex: Male

DRUGS (1)
  1. TPOXX [Suspect]
     Active Substance: TECOVIRIMAT
     Indication: Monkeypox

REACTIONS (1)
  - Drug resistance [Unknown]
